FAERS Safety Report 17837149 (Version 2)
Quarter: 2020Q2

REPORT INFORMATION
  Report Type: Spontaneous
  Country: US (occurrence: US)
  Receive Date: 20200528
  Receipt Date: 20200529
  Transmission Date: 20200714
  Serious: Yes (Other)
  Sender: FDA-Public Use
  Company Number: US-PFIZER INC-2020209182

PATIENT

DRUGS (3)
  1. VFEND [Suspect]
     Active Substance: VORICONAZOLE
     Indication: PNEUMONIA FUNGAL
     Dosage: 375 MG
     Dates: start: 20200507
  2. VFEND [Suspect]
     Active Substance: VORICONAZOLE
     Dosage: 200 MG
     Route: 042
     Dates: start: 20200517, end: 20200518
  3. VFEND [Suspect]
     Active Substance: VORICONAZOLE
     Dosage: 350 MG
     Route: 042
     Dates: start: 20200516, end: 20200517

REACTIONS (2)
  - Off label use [Unknown]
  - Neurotoxicity [Unknown]
